FAERS Safety Report 11393243 (Version 1)
Quarter: 2015Q3

REPORT INFORMATION
  Report Type: Spontaneous
  Country: FR (occurrence: FR)
  Receive Date: 20150818
  Receipt Date: 20150818
  Transmission Date: 20151125
  Serious: Yes (Other)
  Sender: FDA-Public Use
  Company Number: FR-ABBVIE-15P-056-1446754-00

PATIENT
  Age: 10 Month
  Sex: Female

DRUGS (1)
  1. DEPAKINE [Suspect]
     Active Substance: VALPROATE SODIUM
     Indication: EPILEPSY
     Route: 048
     Dates: start: 20150628, end: 20150628

REACTIONS (4)
  - Prescribed overdose [Unknown]
  - Drug prescribing error [Unknown]
  - Incorrect drug dosage form administered [Unknown]
  - Medication error [Unknown]
